FAERS Safety Report 8458806-8 (Version None)
Quarter: 2012Q2

REPORT INFORMATION
  Report Type: 
  Country: None (occurrence: None)
  Receive Date: 20120622
  Receipt Date: 20120611
  Transmission Date: 20120825
  Serious: Yes (Other)
  Sender: FDA-Public Use
  Company Number: US-MILLENNIUM PHARMACEUTICALS, INC.-2012-04179

PATIENT
  Sex: Female

DRUGS (1)
  1. VELCADE [Suspect]
     Indication: MULTIPLE MYELOMA
     Dosage: 3.5 MG, CYCLIC
     Route: 042

REACTIONS (10)
  - DYSPNOEA [None]
  - ANXIETY [None]
  - ACTIVITIES OF DAILY LIVING IMPAIRED [None]
  - COORDINATION ABNORMAL [None]
  - FATIGUE [None]
  - PAIN IN EXTREMITY [None]
  - ASTHENIA [None]
  - DEPRESSION [None]
  - BACK PAIN [None]
  - BONE PAIN [None]
